FAERS Safety Report 6492191-6 (Version None)
Quarter: 2009Q4

REPORT INFORMATION
  Report Type: 
  Country: None (occurrence: None)
  Receive Date: 20091214
  Receipt Date: 20091208
  Transmission Date: 20100525
  Serious: Yes (Other)
  Sender: FDA-Public Use
  Company Number: NL-BIOGENIDEC-2009BI036274

PATIENT
  Age: 48 Year
  Sex: Female

DRUGS (2)
  1. AVONEX [Suspect]
     Indication: MULTIPLE SCLEROSIS
     Route: 030
     Dates: start: 20091019, end: 20091102
  2. AVONEX [Suspect]
     Route: 030
     Dates: start: 20091116

REACTIONS (5)
  - ANGINA PECTORIS [None]
  - ARRHYTHMIA [None]
  - DYSPNOEA [None]
  - PALPITATIONS [None]
  - PARAESTHESIA [None]
